FAERS Safety Report 21342507 (Version 1)
Quarter: 2022Q3

REPORT INFORMATION
  Report Type: Spontaneous
  Country: US (occurrence: US)
  Receive Date: 20220916
  Receipt Date: 20220916
  Transmission Date: 20221026
  Serious: No
  Sender: FDA-Public Use
  Company Number: US-BRISTOL-MYERS SQUIBB COMPANY-2022-103447

PATIENT
  Age: 55 Year
  Sex: Female

DRUGS (1)
  1. SPRYCEL [Suspect]
     Active Substance: DASATINIB
     Indication: Breast cancer female
     Dosage: FREQ: DAILY
     Route: 048
     Dates: start: 20220812

REACTIONS (5)
  - Mental status changes [Unknown]
  - Alopecia [Unknown]
  - Fatigue [Unknown]
  - Acne [Unknown]
  - Intentional product use issue [Unknown]
